FAERS Safety Report 15975160 (Version 2)
Quarter: 2019Q1

REPORT INFORMATION
  Report Type: Spontaneous
  Country: US (occurrence: US)
  Receive Date: 20190218
  Receipt Date: 20190219
  Transmission Date: 20190418
  Serious: No
  Sender: FDA-Public Use
  Company Number: US-PFIZER INC-2019061949

PATIENT
  Age: 53 Year
  Sex: Female
  Weight: 127 kg

DRUGS (1)
  1. GABAPENTIN. [Suspect]
     Active Substance: GABAPENTIN
     Dosage: UNK, THREE TIMES A DAY
     Dates: start: 20181204

REACTIONS (1)
  - Drug ineffective [Unknown]
